FAERS Safety Report 16714381 (Version 1)
Quarter: 2019Q3

REPORT INFORMATION
  Report Type: Spontaneous
  Country: US (occurrence: US)
  Receive Date: 20190819
  Receipt Date: 20190819
  Transmission Date: 20191004
  Serious: Yes (Hospitalization, Other)
  Sender: FDA-Public Use
  Company Number: US-ZYDUS-039897

PATIENT
  Age: 44 Year
  Sex: Female

DRUGS (15)
  1. MIRTAZAPINE. [Concomitant]
     Active Substance: MIRTAZAPINE
     Indication: MAJOR DEPRESSION
     Route: 065
  2. LEVOFLOXACIN. [Suspect]
     Active Substance: LEVOFLOXACIN
     Indication: BONE TUBERCULOSIS
     Route: 065
  3. PYRIDOXINE [Concomitant]
     Active Substance: PYRIDOXINE
     Indication: DISSEMINATED TUBERCULOSIS
     Route: 065
  4. GABAPENTIN. [Concomitant]
     Active Substance: GABAPENTIN
     Indication: BACK PAIN
     Route: 065
  5. ISONIAZID. [Interacting]
     Active Substance: ISONIAZID
     Indication: BONE TUBERCULOSIS
     Route: 065
  6. PYRIDOXINE [Concomitant]
     Active Substance: PYRIDOXINE
     Indication: BONE TUBERCULOSIS
     Route: 065
  7. VENLAFAXINE/VENLAFAXINE HYDROCHLORIDE [Interacting]
     Active Substance: VENLAFAXINE HYDROCHLORIDE
     Indication: MAJOR DEPRESSION
     Route: 048
  8. TRAMADOL. [Concomitant]
     Active Substance: TRAMADOL
     Indication: BACK PAIN
     Route: 065
  9. BACLOFEN. [Concomitant]
     Active Substance: BACLOFEN
     Indication: BACK PAIN
     Route: 065
  10. VENLAFAXINE/VENLAFAXINE HYDROCHLORIDE [Interacting]
     Active Substance: VENLAFAXINE HYDROCHLORIDE
     Indication: MAJOR DEPRESSION
     Route: 048
  11. ISONIAZID. [Interacting]
     Active Substance: ISONIAZID
     Indication: DISSEMINATED TUBERCULOSIS
     Route: 065
  12. RIFAMPICIN [Concomitant]
     Active Substance: RIFAMPIN
     Indication: BONE TUBERCULOSIS
     Route: 065
  13. RIFAMPICIN [Concomitant]
     Active Substance: RIFAMPIN
     Indication: DISSEMINATED TUBERCULOSIS
     Route: 065
  14. LEVOFLOXACIN. [Interacting]
     Active Substance: LEVOFLOXACIN
     Indication: DISSEMINATED TUBERCULOSIS
     Route: 065
  15. MIRTAZAPINE. [Concomitant]
     Active Substance: MIRTAZAPINE
     Indication: MAJOR DEPRESSION
     Route: 065

REACTIONS (5)
  - Fatigue [Recovered/Resolved]
  - Focal dyscognitive seizures [Recovered/Resolved]
  - Unresponsive to stimuli [Recovered/Resolved]
  - Drug interaction [Unknown]
  - Somnolence [Recovered/Resolved]
